FAERS Safety Report 22630261 (Version 4)
Quarter: 2023Q4

REPORT INFORMATION
  Report Type: Spontaneous
  Country: US (occurrence: US)
  Receive Date: 20230622
  Receipt Date: 20231023
  Transmission Date: 20240110
  Serious: No
  Sender: FDA-Public Use
  Company Number: US-BRISTOL-MYERS SQUIBB COMPANY-2023-088264

PATIENT
  Age: 62 Year
  Sex: Female
  Weight: 69.4 kg

DRUGS (3)
  1. POMALYST [Suspect]
     Active Substance: POMALIDOMIDE
     Indication: Plasma cell myeloma
     Dosage: FREQ -3WEEKS ON AND 7 DAYS OFF
     Route: 048
     Dates: end: 20230701
  2. POMALYST [Suspect]
     Active Substance: POMALIDOMIDE
     Dosage: FREQ -21D ON 7D OFF/ 3WEEKS O AND 7 DAYS OFF
     Route: 048
     Dates: start: 20220401
  3. POMALYST [Suspect]
     Active Substance: POMALIDOMIDE
     Dosage: FREQ -DAILY 21 DAYS ON, 7 DAYS OFF
     Route: 048
     Dates: end: 20230701

REACTIONS (4)
  - Pruritus [Unknown]
  - Rash pruritic [Recovered/Resolved]
  - Urticaria [Unknown]
  - Product dose omission issue [Unknown]
